FAERS Safety Report 4364439-5 (Version None)
Quarter: 2004Q2

REPORT INFORMATION
  Report Type: 
  Country: None (occurrence: None)
  Receive Date: 20040525
  Receipt Date: 20040519
  Transmission Date: 20050107
  Serious: Yes (Death)
  Sender: FDA-Public Use
  Company Number: US-GLAXOSMITHKLINE-A0511462A

PATIENT
  Age: 15 Year
  Sex: Male

DRUGS (5)
  1. PAXIL CR [Suspect]
     Dosage: 25MG TWICE PER DAY
     Route: 048
  2. RISPERDAL [Concomitant]
  3. TRAZODONE HCL [Concomitant]
  4. CLONIDINE HCL [Concomitant]
  5. ATIVAN [Concomitant]

REACTIONS (3)
  - CARDIAC ARREST [None]
  - CONVULSION [None]
  - DEATH [None]
